FAERS Safety Report 20493957 (Version 2)
Quarter: 2025Q2

REPORT INFORMATION
  Report Type: Spontaneous
  Country: DE (occurrence: DE)
  Receive Date: 20220221
  Receipt Date: 20250512
  Transmission Date: 20250716
  Serious: Yes (Other)
  Sender: BRISTOL-MYERS SQUIBB COMPANY
  Company Number: DE-SUN PHARMACEUTICAL INDUSTRIES LTD-2022R1-324822

PATIENT
  Age: 70 Year
  Sex: Female

DRUGS (1)
  1. DASATINIB [Suspect]
     Active Substance: DASATINIB
     Indication: Chronic myeloid leukaemia
     Dates: start: 200701, end: 202005

REACTIONS (1)
  - Neoplasm [Recovering/Resolving]
